FAERS Safety Report 4399708-6 (Version None)
Quarter: 2004Q3

REPORT INFORMATION
  Report Type: 
  Country: None (occurrence: None)
  Receive Date: 20040715
  Receipt Date: 20040701
  Transmission Date: 20050211
  Serious: Yes (Death, Hospitalization)
  Sender: FDA-Public Use
  Company Number: A-CH2004-05120

PATIENT
  Age: 66 Year
  Sex: Male

DRUGS (14)
  1. TRACLEER [Suspect]
     Indication: PULMONARY HYPERTENSION
     Dosage: SEE IMAGE
     Route: 048
     Dates: start: 20031230, end: 20040120
  2. TRACLEER [Suspect]
     Indication: PULMONARY HYPERTENSION
     Dosage: SEE IMAGE
     Route: 048
     Dates: start: 20040126, end: 20040126
  3. TRACLEER [Suspect]
     Indication: PULMONARY HYPERTENSION
     Dosage: SEE IMAGE
     Route: 048
     Dates: start: 20040127, end: 20040127
  4. PREDNISOLONE [Concomitant]
  5. CHLORALDURAT (CHLORAL HYDRATE) [Concomitant]
  6. WELLVONE (ATOVAQUONE) [Concomitant]
  7. ALLOPURINOL [Concomitant]
  8. MAGNESIUM OXIDE (MAGNESIUM OXIDE) [Concomitant]
  9. UNAT (TORASEMIDE) [Concomitant]
  10. DYTIDE (BENZTHIAZIDE, TRIAMTERENE) [Concomitant]
  11. MARCUMAR [Concomitant]
  12. CIALIS [Concomitant]
  13. KALINOR-BRAUSETABLETTEN (POTASSIUM CARBONATE, POTASSIUM CITRATE) [Concomitant]
  14. CALCIUM EFFERVESCENT TABLET (CALCIUM LACTOGLUCONATE, CALCIUM CARBONATE [Concomitant]

REACTIONS (10)
  - BRAIN OEDEMA [None]
  - CONDITION AGGRAVATED [None]
  - COR PULMONALE [None]
  - EMPHYSEMA [None]
  - PULMONARY FIBROSIS [None]
  - PULMONARY HYPERTENSION [None]
  - PULMONARY OEDEMA [None]
  - RIGHT VENTRICULAR FAILURE [None]
  - SHOCK [None]
  - TREATMENT NONCOMPLIANCE [None]
